FAERS Safety Report 17039370 (Version 1)
Quarter: 2019Q4

REPORT INFORMATION
  Report Type: Spontaneous
  Country: US (occurrence: US)
  Receive Date: 20191115
  Receipt Date: 20191115
  Transmission Date: 20200122
  Serious: No
  Sender: FDA-Public Use
  Company Number: US-SA-2019SA314797

PATIENT
  Age: 63 Year
  Sex: Female

DRUGS (2)
  1. FAMOTIDINE. [Concomitant]
     Active Substance: FAMOTIDINE
     Indication: RESTLESS LEGS SYNDROME
  2. ALLEGRA ALLERGY [Suspect]
     Active Substance: FEXOFENADINE HYDROCHLORIDE
     Indication: URTICARIA
     Dosage: 180 MG, BID
     Route: 065
     Dates: start: 20191030

REACTIONS (3)
  - Intentional dose omission [Unknown]
  - Muscle spasms [Unknown]
  - Periorbital swelling [Unknown]
